FAERS Safety Report 9181006 (Version 1)
Quarter: 2013Q1

REPORT INFORMATION
  Report Type: Spontaneous
  Country: US (occurrence: None)
  Receive Date: 20130320
  Receipt Date: 20130320
  Transmission Date: 20140127
  Serious: Yes (Life-Threatening)
  Sender: FDA-Public Use
  Company Number: 300150410-AKO-5170

PATIENT
  Age: 43 Year
  Sex: Female
  Weight: 98 kg

DRUGS (7)
  1. METHYLENE BLUE [Suspect]
     Route: 058
     Dates: start: 20130226, end: 20130226
  2. CEFAZOLIN [Concomitant]
  3. SC HEPARIN [Concomitant]
  4. DEXAMETHASONE [Concomitant]
  5. DIPHENHYDRAMINE [Concomitant]
  6. DROPERODOL [Concomitant]
  7. KETAMINE [Concomitant]

REACTIONS (3)
  - Off label use [None]
  - Circulatory collapse [None]
  - Pulseless electrical activity [None]
